FAERS Safety Report 7271570-3 (Version None)
Quarter: 2011Q1

REPORT INFORMATION
  Report Type: 
  Country: None (occurrence: None)
  Receive Date: 20110203
  Receipt Date: 20110124
  Transmission Date: 20110831
  Serious: Yes (Other)
  Sender: FDA-Public Use
  Company Number: AU-JNJFOC-20110106255

PATIENT
  Sex: Female
  Weight: 100 kg

DRUGS (3)
  1. LITHIUM [Concomitant]
  2. REMICADE [Suspect]
     Dosage: 3RD INFUSION
     Route: 042
  3. REMICADE [Suspect]
     Indication: PSORIASIS
     Route: 042

REACTIONS (4)
  - PHARYNGEAL OEDEMA [None]
  - JOINT SWELLING [None]
  - OEDEMA PERIPHERAL [None]
  - ARTHRALGIA [None]
